FAERS Safety Report 5460478-1 (Version None)
Quarter: 2007Q3

REPORT INFORMATION
  Report Type: 
  Country: None (occurrence: None)
  Receive Date: 20070919
  Receipt Date: 20070718
  Transmission Date: 20080115
  Serious: Yes (Other)
  Sender: FDA-Public Use
  Company Number: US-ASTRAZENECA-2007UW17048

PATIENT
  Age: 54 Year
  Sex: Female
  Weight: 76.7 kg

DRUGS (4)
  1. SEROQUEL [Suspect]
     Indication: BIPOLAR DISORDER
     Dosage: DAY ONE
     Route: 048
     Dates: start: 20070701
  2. SEROQUEL [Suspect]
     Dosage: DAY TWO
     Route: 048
     Dates: start: 20070701
  3. SEROQUEL [Suspect]
     Dosage: DAY THREE THRU FIVE
     Route: 048
     Dates: start: 20070701
  4. CRESTOR [Concomitant]

REACTIONS (4)
  - CATARACT [None]
  - HAEMORRHAGE [None]
  - HEADACHE [None]
  - VISION BLURRED [None]
